FAERS Safety Report 24390937 (Version 1)
Quarter: 2024Q4

REPORT INFORMATION
  Report Type: Report from Study
  Country: US (occurrence: US)
  Receive Date: 20241003
  Receipt Date: 20241003
  Transmission Date: 20250115
  Serious: Yes (Other)
  Sender: ACCORD
  Company Number: US-Accord-448621

PATIENT
  Age: 77 Year
  Sex: Male

DRUGS (1)
  1. CLOZAPINE [Suspect]
     Active Substance: CLOZAPINE
     Indication: Product used for unknown indication
     Dosage: 50MG AND 100MG
     Route: 048

REACTIONS (1)
  - Neutrophilia [Unknown]

NARRATIVE: CASE EVENT DATE: 20240922
